FAERS Safety Report 6507874-9 (Version None)
Quarter: 2009Q4

REPORT INFORMATION
  Report Type: 
  Country: None (occurrence: None)
  Receive Date: 20091221
  Receipt Date: 20091217
  Transmission Date: 20100525
  Serious: Yes (Other)
  Sender: FDA-Public Use
  Company Number: A0835630A

PATIENT
  Age: 72 Year
  Sex: Female

DRUGS (2)
  1. ADVAIR DISKUS 100/50 [Suspect]
     Dosage: 1PUFF TWICE PER DAY
     Route: 055
     Dates: start: 20091214
  2. CONCURRENT MEDICATIONS [Concomitant]

REACTIONS (5)
  - CHOKING [None]
  - CHROMATURIA [None]
  - COUGH [None]
  - DRUG ADMINISTRATION ERROR [None]
  - RETCHING [None]
